FAERS Safety Report 8671042 (Version 2)
Quarter: 2014Q4

REPORT INFORMATION
  Report Type: Spontaneous
  Country: US (occurrence: US)
  Receive Date: 20120718
  Receipt Date: 20141205
  Transmission Date: 20150529
  Serious: No
  Sender: FDA-Public Use
  Company Number: US-BRISTOL-MYERS SQUIBB COMPANY-16461840

PATIENT
  Age: 71 Year
  Sex: Female

DRUGS (2)
  1. COUMADIN [Suspect]
     Active Substance: WARFARIN SODIUM
     Dosage: DOSE INCREASED FROM 5MG TO 6MG ,7MG TO 8MG ,9MG TO 10MG
     Route: 048
     Dates: start: 1995
  2. WARFARIN SODIUM. [Suspect]
     Active Substance: WARFARIN SODIUM
     Dosage: START 10 YEARS AGO

REACTIONS (2)
  - Fatigue [Unknown]
  - Contusion [Unknown]
